FAERS Safety Report 19998710 (Version 1)
Quarter: 2021Q4

REPORT INFORMATION
  Report Type: Report from Study
  Country: FR (occurrence: FR)
  Receive Date: 20211026
  Receipt Date: 20211026
  Transmission Date: 20220303
  Serious: Yes (Death, Other)
  Sender: FDA-Public Use
  Company Number: FR-GLAXOSMITHKLINE-FR2021EME219894

PATIENT
  Age: 65 Year
  Sex: Female

DRUGS (2)
  1. BELANTAMAB MAFODOTIN [Suspect]
     Active Substance: BELANTAMAB MAFODOTIN
     Indication: Product used for unknown indication
     Dosage: UNK (BELANTAMAB MAFODOTIN 0 MG/INTAKE ACCORDING TO PROTOCOL CA209-039)
  2. DARATUMUMAB [Suspect]
     Active Substance: DARATUMUMAB
     Indication: Product used for unknown indication
     Dosage: UNK (16 MG/KG/INTAKE 1 TAKE(S)/WEEK 3 WEEK(S)/CYCLE PROTOCOL 240 MG/INTAKE)

REACTIONS (1)
  - Death [Fatal]
